FAERS Safety Report 18083918 (Version 1)
Quarter: 2020Q3

REPORT INFORMATION
  Report Type: Spontaneous
  Country: US (occurrence: US)
  Receive Date: 20200729
  Receipt Date: 20200729
  Transmission Date: 20201103
  Serious: Yes (Hospitalization)
  Sender: FDA-Public Use
  Company Number: US-ROCHE-2648363

PATIENT
  Age: 65 Year
  Sex: Male
  Weight: 109.41 kg

DRUGS (1)
  1. ACTEMRA [Suspect]
     Active Substance: TOCILIZUMAB
     Indication: RHEUMATOID ARTHRITIS
     Route: 042
     Dates: start: 201909, end: 2019

REACTIONS (3)
  - Arthropathy [Recovering/Resolving]
  - Hip arthroplasty [Recovering/Resolving]
  - Joint space narrowing [Recovering/Resolving]

NARRATIVE: CASE EVENT DATE: 202007
